FAERS Safety Report 6918930-5 (Version None)
Quarter: 2010Q3

REPORT INFORMATION
  Report Type: 
  Country: None (occurrence: None)
  Receive Date: 20100811
  Receipt Date: 20100728
  Transmission Date: 20110219
  Serious: No
  Sender: FDA-Public Use
  Company Number: US-PFIZER INC-2008023026

PATIENT
  Sex: Male
  Weight: 107 kg

DRUGS (5)
  1. CAVERJECT [Suspect]
     Indication: ERECTILE DYSFUNCTION
     Dosage: 20 UG, UNK
  2. CAVERJECT [Suspect]
     Dosage: 10 UG, UNK
  3. GLYBURIDE [Concomitant]
     Indication: DIABETES MELLITUS
     Dosage: TWO AND A HALF TABLET TWICE DAILY
     Route: 048
  4. GLYBURIDE [Concomitant]
     Dosage: UNK, 2X/DAY
  5. CARDIZEM [Concomitant]
     Indication: DYSPNOEA
     Dosage: UNK

REACTIONS (2)
  - DRUG EFFECT DECREASED [None]
  - DRUG INEFFECTIVE [None]
